FAERS Safety Report 11105930 (Version 5)
Quarter: 2015Q2

REPORT INFORMATION
  Report Type: Spontaneous
  Country: CN (occurrence: CN)
  Receive Date: 20150512
  Receipt Date: 20150625
  Transmission Date: 20150821
  Serious: Yes (Hospitalization)
  Sender: FDA-Public Use
  Company Number: CN-ASTRAZENECA-2015SE42776

PATIENT
  Age: 40 Year
  Sex: Male
  Weight: 50 kg

DRUGS (3)
  1. ANTYHYPERTENSIVES [Concomitant]
  2. BRICANYL [Suspect]
     Active Substance: TERBUTALINE SULFATE
     Indication: BRONCHITIS CHRONIC
     Route: 055
     Dates: start: 20150501, end: 20150503
  3. PULMICORT RESPULES [Suspect]
     Active Substance: BUDESONIDE
     Indication: BRONCHITIS CHRONIC
     Route: 055
     Dates: start: 20150501, end: 20150503

REACTIONS (8)
  - Left ventricular failure [Unknown]
  - Loss of consciousness [Recovering/Resolving]
  - Palpitations [Recovering/Resolving]
  - Tremor [Recovering/Resolving]
  - Chest discomfort [Recovering/Resolving]
  - Dyspnoea [Recovering/Resolving]
  - Cough [Recovering/Resolving]
  - Product quality issue [Unknown]
